FAERS Safety Report 11440292 (Version 1)
Quarter: 2015Q3

REPORT INFORMATION
  Report Type: Spontaneous
  Country: US (occurrence: US)
  Receive Date: 20150901
  Receipt Date: 20150901
  Transmission Date: 20151125
  Serious: No
  Sender: FDA-Public Use
  Company Number: US-ROCHE-1145703

PATIENT
  Sex: Female

DRUGS (3)
  1. PEGASYS [Suspect]
     Active Substance: PEGINTERFERON ALFA-2A
     Indication: CHRONIC HEPATITIS C
     Route: 058
     Dates: start: 20120629
  2. TELAPREVIR [Suspect]
     Active Substance: TELAPREVIR
     Indication: CHRONIC HEPATITIS C
     Route: 065
  3. RIBAVIRIN. [Suspect]
     Active Substance: RIBAVIRIN
     Indication: CHRONIC HEPATITIS C
     Route: 065
     Dates: start: 20120629

REACTIONS (10)
  - Emotional distress [Unknown]
  - Agitation [Unknown]
  - Eye contusion [Unknown]
  - Lip discolouration [Unknown]
  - Skin disorder [Unknown]
  - Dyspnoea exertional [Unknown]
  - Swelling face [Unknown]
  - Insomnia [Unknown]
  - Depression [Unknown]
  - Haemoglobin decreased [Unknown]
